FAERS Safety Report 25284396 (Version 1)
Quarter: 2025Q2

REPORT INFORMATION
  Report Type: Spontaneous
  Country: US (occurrence: None)
  Receive Date: 20250508
  Receipt Date: 20250508
  Transmission Date: 20250717
  Serious: Yes (unspecified)
  Sender: FDA-CTU
  Company Number: None

PATIENT
  Age: 81 Year
  Sex: Female

DRUGS (1)
  1. CEFTRIAXONE SODIUM [Suspect]
     Active Substance: CEFTRIAXONE SODIUM
     Dosage: FREQUENCY : DAILY;?
     Route: 040
     Dates: start: 20250506, end: 20250506

REACTIONS (9)
  - Feeling hot [None]
  - Dizziness [None]
  - Depressed level of consciousness [None]
  - Hypotension [None]
  - Oxygen saturation decreased [None]
  - Mental status changes [None]
  - Blood glucose increased [None]
  - Unresponsive to stimuli [None]
  - Injection related reaction [None]

NARRATIVE: CASE EVENT DATE: 20250506
